FAERS Safety Report 24548198 (Version 1)
Quarter: 2024Q4

REPORT INFORMATION
  Report Type: Spontaneous
  Country: JP (occurrence: JP)
  Receive Date: 20241025
  Receipt Date: 20241025
  Transmission Date: 20250115
  Serious: Yes (Death, Other)
  Sender: ALEXION PHARMACEUTICALS
  Company Number: JP-ASTRAZENECA-240104766_064320_P_1

PATIENT
  Age: 80 Year

DRUGS (6)
  1. ANDEXXA [Suspect]
     Active Substance: ANDEXANET ALFA
     Indication: Haemorrhage
     Dosage: METHOD A: 400 MG IV AT A RATE OF 30 MG/MIN, FOLLOWED BY 480 MG IV AT A RATE OF 4 MG/MIN FOR 2 H
  2. ANDEXXA [Suspect]
     Active Substance: ANDEXANET ALFA
     Dosage: METHOD A: 400 MG IV AT A RATE OF 30 MG/MIN, FOLLOWED BY 480 MG IV AT A RATE OF 4 MG/MIN FOR 2 H
  3. ANDEXXA [Suspect]
     Active Substance: ANDEXANET ALFA
     Dosage: METHOD A: 400 MG IV AT A RATE OF 30 MG/MIN, FOLLOWED BY 480 MG IV AT A RATE OF 4 MG/MIN FOR 2 H
  4. ANDEXXA [Suspect]
     Active Substance: ANDEXANET ALFA
     Dosage: METHOD A: 400 MG IV AT A RATE OF 30 MG/MIN, FOLLOWED BY 480 MG IV AT A RATE OF 4 MG/MIN FOR 2 H
  5. APIXABAN [Concomitant]
     Active Substance: APIXABAN
     Dosage: DOSE UNKNOWN
  6. APIXABAN [Concomitant]
     Active Substance: APIXABAN
     Dosage: DOSE UNKNOWN

REACTIONS (1)
  - Death [Fatal]
